FAERS Safety Report 25864015 (Version 1)
Quarter: 2025Q3

REPORT INFORMATION
  Report Type: Spontaneous
  Country: AU (occurrence: AU)
  Receive Date: 20250930
  Receipt Date: 20250930
  Transmission Date: 20251021
  Serious: Yes (Other)
  Sender: AMGEN
  Company Number: AU-AMGEN-AUSSP2025190210

PATIENT

DRUGS (3)
  1. CARFILZOMIB [Suspect]
     Active Substance: CARFILZOMIB
     Indication: Plasma cell myeloma refractory
     Route: 065
  2. DEXAMETHASONE [Suspect]
     Active Substance: DEXAMETHASONE
     Indication: Plasma cell myeloma refractory
     Route: 065
  3. BELANTAMAB MAFODOTIN [Suspect]
     Active Substance: BELANTAMAB MAFODOTIN
     Indication: Plasma cell myeloma refractory
     Route: 065

REACTIONS (10)
  - Haematotoxicity [Unknown]
  - Infection [Unknown]
  - Photophobia [Unknown]
  - Eye pain [Unknown]
  - Dry eye [Unknown]
  - Keratopathy [Unknown]
  - Visual acuity reduced [Unknown]
  - Vision blurred [Unknown]
  - Plasma cell myeloma [Unknown]
  - Therapy partial responder [Unknown]
